FAERS Safety Report 14080526 (Version 3)
Quarter: 2017Q4

REPORT INFORMATION
  Report Type: Spontaneous
  Country: US (occurrence: US)
  Receive Date: 20171012
  Receipt Date: 20171218
  Transmission Date: 20180321
  Serious: No
  Sender: FDA-Public Use
  Company Number: US-MYLANLABS-2017M1037102

PATIENT
  Age: 66 Year
  Sex: Female
  Weight: 72.56 kg

DRUGS (1)
  1. TOLTERODINE [Suspect]
     Active Substance: TOLTERODINE
     Indication: CYSTITIS INTERSTITIAL
     Dosage: 4 MG, QD
     Route: 048

REACTIONS (1)
  - Drug ineffective for unapproved indication [Not Recovered/Not Resolved]

NARRATIVE: CASE EVENT DATE: 20170605
